FAERS Safety Report 6382938-1 (Version None)
Quarter: 2009Q3

REPORT INFORMATION
  Report Type: 
  Country: None (occurrence: None)
  Receive Date: 20090930
  Receipt Date: 20090917
  Transmission Date: 20100115
  Serious: Yes (Death)
  Sender: FDA-Public Use
  Company Number: FR-PFIZER INC-2009270362

PATIENT
  Age: 53 Year

DRUGS (4)
  1. XANAX [Suspect]
     Indication: DEPRESSION
     Dosage: HIGH THERAPEUTIC LEVEL
  2. ZOPICLONE [Suspect]
     Indication: DEPRESSION
     Dosage: LETHAL LEVEL
     Route: 048
  3. TIAPRIDAL [Suspect]
     Dosage: LETHAL LEVEL
     Route: 047
  4. CITALOPRAM [Suspect]
     Indication: DEPRESSION
     Dosage: TOXIC LEVEL
     Route: 048

REACTIONS (5)
  - CHRONIC HEPATITIS [None]
  - DEATH [None]
  - DRUG LEVEL ABOVE THERAPEUTIC [None]
  - PULMONARY OEDEMA [None]
  - SELF-MEDICATION [None]
